FAERS Safety Report 6155786-5 (Version None)
Quarter: 2009Q2

REPORT INFORMATION
  Report Type: 
  Country: None (occurrence: None)
  Receive Date: 20090415
  Receipt Date: 20090410
  Transmission Date: 20091009
  Serious: Yes (Life-Threatening, Hospitalization, Other)
  Sender: FDA-Public Use
  Company Number: PHHY2009JP13656

PATIENT
  Age: 63 Year
  Sex: Male

DRUGS (5)
  1. DIOVAN [Suspect]
     Indication: HYPERTENSION
     Dosage: 80 MG, QD
     Route: 048
     Dates: end: 20090407
  2. GASTER [Suspect]
     Dosage: 20 MG DAILY
     Dates: end: 20090407
  3. ALDACTONE [Concomitant]
     Dosage: 25 MG
     Route: 048
     Dates: end: 20090407
  4. ADALAT CC [Concomitant]
     Dosage: 60 MG
     Route: 048
     Dates: end: 20090407
  5. PERSANTINE [Concomitant]
     Dosage: 100 MG
     Route: 048
     Dates: end: 20090407

REACTIONS (1)
  - INTERSTITIAL LUNG DISEASE [None]
